FAERS Safety Report 5422259-4 (Version None)
Quarter: 2007Q3

REPORT INFORMATION
  Report Type: 
  Country: None (occurrence: None)
  Receive Date: 20070822
  Receipt Date: 20070815
  Transmission Date: 20080115
  Serious: Yes (Other)
  Sender: FDA-Public Use
  Company Number: GB-AVENTIS-200717547GDDC

PATIENT

DRUGS (1)
  1. ARAVA [Suspect]
     Dosage: DOSE: UNK

REACTIONS (1)
  - OSTEONECROSIS [None]
